FAERS Safety Report 21703536 (Version 3)
Quarter: 2022Q4

REPORT INFORMATION
  Report Type: Report from Study
  Country: BE (occurrence: BE)
  Receive Date: 20221209
  Receipt Date: 20221213
  Transmission Date: 20230113
  Serious: Yes (Other)
  Sender: FDA-Public Use
  Company Number: BE-ABBVIE-4229641

PATIENT
  Age: 62 Year
  Sex: Male
  Weight: 85 kg

DRUGS (7)
  1. UPADACITINIB [Suspect]
     Active Substance: UPADACITINIB
     Indication: Rheumatoid arthritis
     Route: 048
     Dates: start: 20210915, end: 20221207
  2. LEFLUNOMIDE [Concomitant]
     Active Substance: LEFLUNOMIDE
     Indication: Rheumatoid arthritis
     Route: 048
     Dates: start: 201805
  3. Severe acute respiratory syndrome coronavirus 2 (SARS-CoV-2) vaccine [Concomitant]
     Indication: Prophylaxis
     Dates: start: 2021, end: 2021
  4. Severe acute respiratory syndrome coronavirus 2 (SARS-CoV-2) vaccine [Concomitant]
     Indication: Prophylaxis
     Dosage: ONE IN ONCE, FIRST DOSE
     Route: 030
     Dates: start: 2021, end: 2021
  5. Severe acute respiratory syndrome coronavirus 2 (SARS-CoV-2) vaccine [Concomitant]
     Indication: Prophylaxis
     Dates: start: 20220225, end: 20220225
  6. Severe acute respiratory syndrome coronavirus 2 (SARS-CoV-2) vaccine [Concomitant]
     Indication: Prophylaxis
     Dosage: ONE IN ONCE, SECOND DOSE
     Route: 030
     Dates: start: 20220225, end: 20220225
  7. OMEPRAZOLE [Concomitant]
     Active Substance: OMEPRAZOLE
     Indication: Abdominal pain upper
     Route: 048
     Dates: start: 20220901

REACTIONS (1)
  - Oropharyngeal cancer [Not Recovered/Not Resolved]

NARRATIVE: CASE EVENT DATE: 20221027
